FAERS Safety Report 11320629 (Version 1)
Quarter: 2015Q3

REPORT INFORMATION
  Report Type: Spontaneous
  Country: GB (occurrence: GB)
  Receive Date: 20150729
  Receipt Date: 20150729
  Transmission Date: 20151125
  Serious: Yes (Hospitalization)
  Sender: FDA-Public Use
  Company Number: GB-TEVA-580322ACC

PATIENT
  Age: 41 Year
  Sex: Female
  Weight: 66.3 kg

DRUGS (52)
  1. DIAZEPAM. [Concomitant]
     Active Substance: DIAZEPAM
     Dosage: FREQ: PRN.
     Route: 065
     Dates: start: 20100409, end: 20100623
  2. LEVOMEPROMAZINE [Concomitant]
     Active Substance: LEVOMEPROMAZINE
     Dosage: FREQUENCY: PRN
     Route: 065
  3. MORPHINE SULFATE. [Concomitant]
     Active Substance: MORPHINE SULFATE
     Dosage: AS NECESSARY
     Route: 065
  4. DOXORUBICIN [Suspect]
     Active Substance: DOXORUBICIN
     Indication: DIFFUSE LARGE B-CELL LYMPHOMA
     Dosage: LAST DOSE PRIOR TO ONSET OF SAE: 05 MAY 2010.
     Route: 042
  5. CYCLOPHOSPHAMIDE. [Suspect]
     Active Substance: CYCLOPHOSPHAMIDE
     Indication: DIFFUSE LARGE B-CELL LYMPHOMA
     Route: 042
     Dates: start: 20100602, end: 20100804
  6. MABTHERA [Suspect]
     Active Substance: RITUXIMAB
     Indication: DIFFUSE LARGE B-CELL LYMPHOMA
     Dosage: LAST DOSE PRIOR TO ONSET OF SAE: 05 MAY 2010.
     Route: 042
  7. LAXIDO [Concomitant]
     Active Substance: POLYETHYLENE GLYCOL 3350\POTASSIUM CHLORIDE\SODIUM BICARBONATE\SODIUM CHLORIDE
     Route: 065
     Dates: start: 20100420, end: 20100806
  8. METOCLOPRAMIDE. [Concomitant]
     Active Substance: METOCLOPRAMIDE
     Route: 065
     Dates: start: 20100505, end: 20100510
  9. MORPHINE SULFATE. [Concomitant]
     Active Substance: MORPHINE SULFATE
     Dosage: DRUG REPORTED AS MORPHINE SULPHATE.
     Route: 065
     Dates: start: 20100405, end: 20100414
  10. PARACETAMOL [Concomitant]
     Active Substance: ACETAMINOPHEN
     Dosage: TDD: 1- 4 GM, FREQUENCY: PRN
     Route: 065
  11. RANITIDINE [Concomitant]
     Active Substance: RANITIDINE\RANITIDINE HYDROCHLORIDE
     Route: 065
     Dates: start: 20100804, end: 20100808
  12. ACICLOVIR [Concomitant]
     Active Substance: ACYCLOVIR
     Route: 065
     Dates: start: 20100505, end: 20101125
  13. ACICLOVIR [Concomitant]
     Active Substance: ACYCLOVIR
     Route: 065
  14. CODEINE PHOSPHATE [Concomitant]
     Active Substance: CODEINE PHOSPHATE
     Dosage: FREQUENCY: PRN, TDD: 30 MG - 60 EVE
     Route: 065
  15. DIAZEPAM. [Concomitant]
     Active Substance: DIAZEPAM
     Route: 065
  16. LEVOMEPROMAZINE [Concomitant]
     Active Substance: LEVOMEPROMAZINE
     Route: 065
     Dates: start: 20100511, end: 20100910
  17. LACTULOSE. [Concomitant]
     Active Substance: LACTULOSE
     Dosage: 30 ML DAILY;
     Route: 065
     Dates: start: 20100411, end: 20100414
  18. TEMAZEPAM. [Concomitant]
     Active Substance: TEMAZEPAM
     Route: 065
     Dates: start: 20100404, end: 20100412
  19. PREDNISOLONE. [Suspect]
     Active Substance: PREDNISOLONE
     Indication: DIFFUSE LARGE B-CELL LYMPHOMA
     Dosage: DOSE: 50 MG ONCE DAILY FOR 2 DAYS, 100 MG ONCE DAILY FOR 6 DAYS AND 70 MG ONCE DAILY FOR 3 DAYS,
     Route: 048
     Dates: start: 20100406, end: 20100408
  20. PREDNISOLONE. [Suspect]
     Active Substance: PREDNISOLONE
     Dosage: FREQUENCY: OD X 5 DAYS, LAST DOSE PRIOR TO SAE: 23 JUNE 2010
     Route: 048
     Dates: start: 20100602, end: 20100808
  21. VINCRISTINE [Suspect]
     Active Substance: VINCRISTINE
     Indication: DIFFUSE LARGE B-CELL LYMPHOMA
     Dosage: LAST DOSE PRIOR TO ONSET OF SAE: 05 MAY 2010.
     Route: 042
  22. AVASTIN [Suspect]
     Active Substance: BEVACIZUMAB
     Indication: DIFFUSE LARGE B-CELL LYMPHOMA
     Dosage: LAST DOSE PRIOR TO ONSET OF SAE: 04 AUGUST 2010.
     Route: 042
  23. ALLOPURINOL. [Concomitant]
     Active Substance: ALLOPURINOL
     Route: 065
     Dates: start: 20100405, end: 20100417
  24. CODEINE PHOSPHATE [Concomitant]
     Active Substance: CODEINE PHOSPHATE
     Dosage: AS NECESSARY
     Route: 065
     Dates: start: 20100510, end: 20100512
  25. DICLOFENAC [Concomitant]
     Active Substance: DICLOFENAC
     Route: 065
     Dates: start: 20100521, end: 20100523
  26. LORAZEPAM. [Concomitant]
     Active Substance: LORAZEPAM
     Dosage: FREQUENCY: PRN
     Route: 065
  27. METOCLOPRAMIDE. [Concomitant]
     Active Substance: METOCLOPRAMIDE
     Dosage: FREQUENCY: PRN
     Route: 065
     Dates: start: 20100602, end: 20100623
  28. MORPHINE SULFATE. [Concomitant]
     Active Substance: MORPHINE SULFATE
     Dosage: FREQUENCYL:AS NEEDED
     Route: 065
     Dates: start: 20100511, end: 20101125
  29. ONDANSETRON [Concomitant]
     Active Substance: ONDANSETRON
     Route: 065
  30. RANITIDINE [Concomitant]
     Active Substance: RANITIDINE\RANITIDINE HYDROCHLORIDE
     Route: 065
     Dates: start: 20100511, end: 20100513
  31. DOXORUBICIN [Suspect]
     Active Substance: DOXORUBICIN
     Route: 042
     Dates: start: 20100602, end: 20100804
  32. CODEINE PHOSPHATE [Concomitant]
     Active Substance: CODEINE PHOSPHATE
     Indication: HEADACHE
     Route: 065
  33. CYCLIZINE [Concomitant]
     Active Substance: CYCLIZINE
     Route: 065
     Dates: start: 20100405, end: 20101125
  34. FLUOXETINE [Concomitant]
     Active Substance: FLUOXETINE\FLUOXETINE HYDROCHLORIDE
     Dosage: STARTED PRIOR TO STUDY TREATMENT
     Route: 065
  35. ONDANSETRON [Concomitant]
     Active Substance: ONDANSETRON
     Dosage: FREQUENCY: AS NECESSARY. (PRN).
     Route: 065
  36. PARACETAMOL [Concomitant]
     Active Substance: ACETAMINOPHEN
     Route: 065
     Dates: start: 20100510, end: 20100513
  37. MABTHERA [Suspect]
     Active Substance: RITUXIMAB
     Route: 042
     Dates: start: 20100602, end: 20101001
  38. AMITRIPTYLINE [Concomitant]
     Active Substance: AMITRIPTYLINE
     Route: 065
  39. ONDANSETRON [Concomitant]
     Active Substance: ONDANSETRON
     Route: 065
     Dates: start: 20100526, end: 20100526
  40. PREDNISOLONE. [Suspect]
     Active Substance: PREDNISOLONE
     Route: 048
     Dates: start: 20100505, end: 20100509
  41. PREDNISOLONE. [Suspect]
     Active Substance: PREDNISOLONE
     Dosage: FREQUENCY: AS X5DAYS, LAST DOSE PRIOR TO ONSET OF SAE: 04 AUGUST 2010.
     Route: 048
  42. VINCRISTINE [Suspect]
     Active Substance: VINCRISTINE
     Route: 042
     Dates: start: 20100602, end: 20100804
  43. CYCLOPHOSPHAMIDE. [Suspect]
     Active Substance: CYCLOPHOSPHAMIDE
     Dosage: LAST DOSE PRIOR TO ONSET OF SAE:05 MAY 2010.
     Route: 042
  44. CODEINE PHOSPHATE [Concomitant]
     Active Substance: CODEINE PHOSPHATE
     Dosage: AS NECESSARY
     Route: 065
  45. FLUCONAZOLE. [Concomitant]
     Active Substance: FLUCONAZOLE
     Route: 065
  46. HYOSCINE BUTYLBROMIDE [Concomitant]
     Active Substance: BUTYLSCOPOLAMINE
     Route: 065
     Dates: start: 20100419, end: 20100419
  47. ONDANSETRON [Concomitant]
     Active Substance: ONDANSETRON
     Route: 065
     Dates: start: 20100505, end: 20100510
  48. PARACETAMOL [Concomitant]
     Active Substance: ACETAMINOPHEN
     Route: 065
  49. RANITIDINE [Concomitant]
     Active Substance: RANITIDINE\RANITIDINE HYDROCHLORIDE
     Route: 065
  50. ZOPICLONE [Concomitant]
     Active Substance: ZOPICLONE
     Route: 065
     Dates: start: 20100419, end: 20100510
  51. ONDANSETRON [Concomitant]
     Active Substance: ONDANSETRON
     Route: 065
     Dates: start: 20100411, end: 20100413
  52. RANITIDINE [Concomitant]
     Active Substance: RANITIDINE\RANITIDINE HYDROCHLORIDE
     Route: 065
     Dates: start: 20100505, end: 20100510

REACTIONS (4)
  - Abdominal pain [Recovered/Resolved]
  - Pyrexia [Recovered/Resolved]
  - Headache [Recovered/Resolved]
  - Nausea [Recovered/Resolved]

NARRATIVE: CASE EVENT DATE: 20100413
